FAERS Safety Report 17262060 (Version 2)
Quarter: 2020Q1

REPORT INFORMATION
  Report Type: Report from Study
  Country: IE (occurrence: IE)
  Receive Date: 20200113
  Receipt Date: 20200213
  Transmission Date: 20200409
  Serious: Yes (Other)
  Sender: FDA-Public Use
  Company Number: IE-JNJFOC-20200111016

PATIENT
  Age: 69 Year
  Sex: Male

DRUGS (23)
  1. PARACETAMOL [Concomitant]
     Active Substance: ACETAMINOPHEN
     Route: 050
  2. VITAMIN B6 [Concomitant]
     Active Substance: PYRIDOXINE HYDROCHLORIDE
     Route: 050
  3. MOTILIUM [Concomitant]
     Active Substance: DOMPERIDONE
     Route: 050
  4. ENALAPRIL [Concomitant]
     Active Substance: ENALAPRIL
     Route: 050
  5. VALOID                             /00014902/ [Concomitant]
     Active Substance: CYCLIZINE HYDROCHLORIDE
     Route: 050
  6. GALFER [Concomitant]
     Active Substance: IRON
     Route: 050
  7. ZOVIRAX [Concomitant]
     Active Substance: ACYCLOVIR
     Route: 050
  8. LERCANIDIPINE [Concomitant]
     Active Substance: LERCANIDIPINE
     Route: 050
  9. ATORVASTATIN [Concomitant]
     Active Substance: ATORVASTATIN
     Dosage: NIGHT
     Route: 050
  10. 3M CAVILON ANTIFUNGAL [Concomitant]
     Active Substance: MICONAZOLE NITRATE
  11. TRAVOCORT [Concomitant]
     Active Substance: DIFLUCORTOLONE VALERATE\ISOCONAZOLE NITRATE
     Route: 050
  12. PREDNISOLONE. [Concomitant]
     Active Substance: PREDNISOLONE
  13. DULOXETINE. [Concomitant]
     Active Substance: DULOXETINE
     Route: 050
  14. LUPRON DEPOT [Concomitant]
     Active Substance: LEUPROLIDE ACETATE
     Route: 050
  15. LANSOPRAZOLE. [Concomitant]
     Active Substance: LANSOPRAZOLE
     Route: 050
  16. STUGERON [Concomitant]
     Active Substance: CINNARIZINE
     Route: 050
  17. DEXAMETHASONE. [Concomitant]
     Active Substance: DEXAMETHASONE
     Route: 050
  18. ABIRATERONE ACETATE. [Suspect]
     Active Substance: ABIRATERONE ACETATE
     Indication: PROSTATE CANCER
     Route: 048
     Dates: start: 20170815
  19. DOXANE [Concomitant]
     Route: 050
  20. ACETYLSALICYLIC ACID [Concomitant]
     Active Substance: ASPIRIN
     Route: 050
  21. CALCICHEW [Concomitant]
     Active Substance: CALCIUM CARBONATE
     Route: 050
  22. DIFENE [Concomitant]
     Active Substance: DICLOFENAC SODIUM
     Route: 050
  23. IMODIUM [Concomitant]
     Active Substance: LOPERAMIDE HYDROCHLORIDE
     Route: 050

REACTIONS (4)
  - Muscular weakness [Not Recovered/Not Resolved]
  - Radiotherapy [Not Recovered/Not Resolved]
  - Chemotherapy [Unknown]
  - Back pain [Not Recovered/Not Resolved]

NARRATIVE: CASE EVENT DATE: 201912
